FAERS Safety Report 6645689-1 (Version None)
Quarter: 2010Q1

REPORT INFORMATION
  Report Type: 
  Country: None (occurrence: None)
  Receive Date: 20100323
  Receipt Date: 20100309
  Transmission Date: 20100710
  Serious: Yes (Other)
  Sender: FDA-Public Use
  Company Number: TR-JNJFOC-20100304029

PATIENT
  Age: 18 Month
  Sex: Female

DRUGS (3)
  1. INFLIXIMAB [Suspect]
     Indication: CROHN'S DISEASE
     Dosage: INDUCTION DOSE AT 0, 2 AND 6 WEEKS, THEN EVERY 8 WEEKS THEREAFTER
     Route: 042
  2. AZATHIOPRINE [Concomitant]
     Indication: CROHN'S DISEASE
  3. STEROIDS NOS [Concomitant]
     Indication: CROHN'S DISEASE

REACTIONS (5)
  - DRUG EFFECT DECREASED [None]
  - FLUSHING [None]
  - INFUSION RELATED REACTION [None]
  - OFF LABEL USE [None]
  - TACHYCARDIA [None]
